FAERS Safety Report 5854282-X (Version None)
Quarter: 2008Q3

REPORT INFORMATION
  Report Type: 
  Country: None (occurrence: None)
  Receive Date: 20080822
  Receipt Date: 20080814
  Transmission Date: 20090109
  Serious: Yes (Other)
  Sender: FDA-Public Use
  Company Number: DE-GENENTECH-266534

PATIENT
  Age: 66 Year
  Sex: Female

DRUGS (5)
  1. MABTHERA [Suspect]
     Indication: NON-HODGKIN'S LYMPHOMA
  2. CYCLOPHOSPHAMIDE [Concomitant]
     Indication: NON-HODGKIN'S LYMPHOMA
  3. DOXORUBICIN HCL [Concomitant]
     Indication: NON-HODGKIN'S LYMPHOMA
  4. VINCRISTINE [Concomitant]
     Indication: NON-HODGKIN'S LYMPHOMA
  5. PREDNISONE TAB [Concomitant]
     Indication: NON-HODGKIN'S LYMPHOMA

REACTIONS (1)
  - PSORIASIS [None]
